FAERS Safety Report 24937567 (Version 1)
Quarter: 2025Q1

REPORT INFORMATION
  Report Type: Report from Study
  Country: US (occurrence: US)
  Receive Date: 20250206
  Receipt Date: 20250206
  Transmission Date: 20250409
  Serious: Yes (Death)
  Sender: BAYER HEALTHCARE PHARMACEUTICALS INC.
  Company Number: US-BAYER-2025A017255

PATIENT
  Age: 83 Year
  Sex: Male
  Weight: 61.224 kg

DRUGS (10)
  1. ADEMPAS [Suspect]
     Active Substance: RIOCIGUAT
     Indication: Pulmonary arterial hypertension
     Dosage: 0.5 MG, TID
     Route: 048
     Dates: start: 20230224
  2. FUROSEMIDE [Concomitant]
     Active Substance: FUROSEMIDE
  3. TAMSULOSIN HYDROCHLORIDE [Concomitant]
     Active Substance: TAMSULOSIN HYDROCHLORIDE
  4. ALBUTEROL SULFATE [Concomitant]
     Active Substance: ALBUTEROL SULFATE
  5. METOLAZONE [Concomitant]
     Active Substance: METOLAZONE
  6. FINASTERIDE [Concomitant]
     Active Substance: FINASTERIDE
  7. ASPIRIN [Concomitant]
     Active Substance: ASPIRIN
  8. OXYGEN [Concomitant]
     Active Substance: OXYGEN
  9. TYVASO [Concomitant]
     Active Substance: TREPROSTINIL
  10. ALEVE [Concomitant]
     Active Substance: NAPROXEN SODIUM

REACTIONS (1)
  - Death [Fatal]

NARRATIVE: CASE EVENT DATE: 20250129
